FAERS Safety Report 9006693 (Version 1)
Quarter: 2013Q1

REPORT INFORMATION
  Report Type: Spontaneous
  Country: US (occurrence: US)
  Receive Date: 20130110
  Receipt Date: 20130110
  Transmission Date: 20140127
  Serious: Yes (Other)
  Sender: FDA-Public Use
  Company Number: US-ROCHE-1177027

PATIENT
  Age: 59 Year
  Sex: Female

DRUGS (1)
  1. XELODA [Suspect]
     Indication: COLORECTAL CANCER
     Dosage: 6 TABLETS OF 500MG 7 DAYS ON AND 7 DAYS OFF
     Route: 065
     Dates: start: 201201

REACTIONS (5)
  - Intestinal obstruction [Unknown]
  - Erythema [Unknown]
  - Pain in extremity [Unknown]
  - Scab [Unknown]
  - Local swelling [Unknown]
